FAERS Safety Report 6348756-5 (Version None)
Quarter: 2009Q3

REPORT INFORMATION
  Report Type: 
  Country: None (occurrence: None)
  Receive Date: 20090911
  Receipt Date: 20090904
  Transmission Date: 20100115
  Serious: Yes (Other)
  Sender: FDA-Public Use
  Company Number: US-BAYER-200825701NA

PATIENT
  Age: 73 Year
  Sex: Male
  Weight: 77 kg

DRUGS (16)
  1. SORAFENIB [Suspect]
     Indication: NON-SMALL CELL LUNG CANCER
     Dosage: UNIT DOSE: 200 MG
     Route: 048
     Dates: start: 20080601, end: 20080612
  2. PACLITAXEL [Suspect]
     Indication: NON-SMALL CELL LUNG CANCER
     Route: 042
     Dates: start: 20080530, end: 20080530
  3. CARBOPLATIN [Suspect]
     Indication: NON-SMALL CELL LUNG CANCER
     Dosage: 4.5 AUC
     Route: 042
     Dates: start: 20080530, end: 20080530
  4. BEVACIZUMAB [Suspect]
     Indication: NON-SMALL CELL LUNG CANCER
     Route: 042
     Dates: start: 20080530, end: 20080530
  5. MIRALAX [Concomitant]
     Indication: CONSTIPATION
     Route: 048
     Dates: start: 20080602
  6. MS CONTIN [Concomitant]
     Indication: ABDOMINAL PAIN
     Route: 048
     Dates: start: 20080602
  7. MORPHINE SULFATE [Concomitant]
     Indication: ABDOMINAL PAIN
     Route: 048
     Dates: start: 20080602
  8. AMBIEN [Concomitant]
     Indication: INSOMNIA
     Route: 048
     Dates: start: 20080212
  9. FLOMAL [Concomitant]
     Indication: BENIGN PROSTATIC HYPERPLASIA
     Route: 048
     Dates: start: 20030101
  10. NEXIUM [Concomitant]
     Indication: GASTROOESOPHAGEAL REFLUX DISEASE
     Route: 048
     Dates: start: 20080101
  11. VYTORIN [Concomitant]
     Indication: HYPERLIPIDAEMIA
     Dosage: 10/40 MG
     Route: 048
     Dates: start: 20060101
  12. ZYRTEC [Concomitant]
     Indication: MULTIPLE ALLERGIES
     Route: 048
     Dates: start: 20030101
  13. FOLTX PLUS SUPER B50 [Concomitant]
     Indication: MEDICAL DIET
     Dosage: ONE TAB
     Route: 048
     Dates: start: 20080220
  14. FLUDROSCORTISONE [Concomitant]
     Indication: ADRENAL INSUFFICIENCY
     Route: 048
     Dates: start: 20080521
  15. LIDOCAINE HCL VISCOUS [Concomitant]
     Indication: STOMATITIS
     Route: 048
     Dates: start: 20080305
  16. PHENERGAN [Concomitant]
     Indication: NAUSEA
     Route: 048
     Dates: start: 20080101

REACTIONS (3)
  - DEEP VEIN THROMBOSIS [None]
  - MALIGNANT NEOPLASM PROGRESSION [None]
  - NON-SMALL CELL LUNG CANCER [None]
